FAERS Safety Report 8283941-7 (Version None)
Quarter: 2012Q2

REPORT INFORMATION
  Report Type: 
  Country: None (occurrence: None)
  Receive Date: 20120413
  Receipt Date: 20120403
  Transmission Date: 20120825
  Serious: Yes (Life-Threatening, Hospitalization)
  Sender: FDA-Public Use
  Company Number: ES-TEVA-331969USA

PATIENT
  Sex: Female
  Weight: 61 kg

DRUGS (14)
  1. CYTARABINE [Suspect]
     Indication: NON-HODGKIN'S LYMPHOMA
  2. TEICOPLANIN [Concomitant]
     Indication: PYREXIA
     Dosage: 400 MILLIGRAM;
     Route: 042
     Dates: start: 20120328
  3. TEICOPLANIN [Concomitant]
     Indication: HYPOTENSION
  4. AMPHOTERICIN B [Concomitant]
     Indication: CANDIDIASIS
     Route: 042
     Dates: start: 20120329
  5. MEROPENEM [Concomitant]
     Indication: HYPOTENSION
  6. MEROPENEM [Concomitant]
     Indication: PYREXIA
     Route: 042
     Dates: start: 20120328
  7. TREANDA [Suspect]
     Indication: NON-HODGKIN'S LYMPHOMA
     Route: 042
     Dates: start: 20110906
  8. AMIKACIN [Concomitant]
     Indication: HYPOTENSION
  9. CEFTRIAXONE [Concomitant]
     Dosage: 2 GRAM;
     Route: 042
     Dates: start: 20120328, end: 20120328
  10. AMIKACIN [Concomitant]
     Indication: PYREXIA
     Dosage: 1 GRAM;
     Route: 042
     Dates: start: 20120328
  11. OMEPRAZOLE [Concomitant]
     Route: 048
  12. MELPHALAN HYDROCHLORIDE [Suspect]
     Indication: NON-HODGKIN'S LYMPHOMA
  13. SIMVASTATIN [Concomitant]
     Dosage: 1 DOSAGE FORMS;
     Route: 048
  14. ETOPOSIDE [Suspect]
     Indication: NON-HODGKIN'S LYMPHOMA

REACTIONS (2)
  - HYPOTENSION [None]
  - HYPERTHERMIA [None]
